FAERS Safety Report 20016876 (Version 1)
Quarter: 2021Q4

REPORT INFORMATION
  Report Type: Spontaneous
  Country: US (occurrence: None)
  Receive Date: 20211105
  Receipt Date: 20211105
  Transmission Date: 20220303
  Serious: Yes (Hospitalization)
  Sender: FDA-Public Use
  Company Number: None

PATIENT
  Age: 76 Year
  Sex: Male
  Weight: 58.1 kg

DRUGS (17)
  1. METFORMIN [Suspect]
     Active Substance: METFORMIN HYDROCHLORIDE
     Indication: Type 2 diabetes mellitus
     Dosage: FREQUENCY : TWICE A DAY;?
     Route: 048
     Dates: start: 20180518, end: 20211102
  2. Aspirin 81mg QD [Concomitant]
     Dates: start: 20170808
  3. Atorvastatin 80mg QD [Concomitant]
     Dates: start: 20211018
  4. Cetirizine 10mg QD [Concomitant]
     Dates: start: 20120216
  5. Donepezil 10mg QD [Concomitant]
     Dates: start: 20190828
  6. Duloxetine 60mg BID [Concomitant]
     Dates: start: 20191007
  7. Ferrous sulfate 325mg QD [Concomitant]
     Dates: start: 20190930
  8. Fluocinonide 0.05% external solution [Concomitant]
     Dates: start: 20171017
  9. Glimepiride 2mg BID [Concomitant]
     Dates: start: 20201204
  10. HCTZ 12.5mg QD [Concomitant]
     Dates: start: 20210920
  11. Lisinopril 20mg QD [Concomitant]
     Dates: start: 20201204
  12. Memantine 10mg BID [Concomitant]
     Dates: start: 20200302
  13. Lyrica 150mg TID [Concomitant]
     Dates: start: 20190930
  14. Primidone 50mg BID [Concomitant]
     Dates: start: 20190930
  15. Rivastigmine 9.5mg patch QD [Concomitant]
     Dates: start: 20191125
  16. Tamsulosin 0.4mg QHS [Concomitant]
     Dates: start: 20140827
  17. Topiramate 100mg BID [Concomitant]
     Dates: start: 20201204

REACTIONS (6)
  - Nausea [None]
  - Vomiting [None]
  - Diarrhoea [None]
  - Hypophagia [None]
  - Acute kidney injury [None]
  - Lactic acidosis [None]

NARRATIVE: CASE EVENT DATE: 20211102
